FAERS Safety Report 11918342 (Version 4)
Quarter: 2016Q1

REPORT INFORMATION
  Report Type: Report from Study
  Country: US (occurrence: US)
  Receive Date: 20160115
  Receipt Date: 20160329
  Transmission Date: 20160526
  Serious: Yes (Hospitalization, Other)
  Sender: FDA-Public Use
  Company Number: US-AMGEN-USASL2016003252

PATIENT
  Age: 77 Year
  Sex: Female

DRUGS (2)
  1. PREDNISONE. [Concomitant]
     Active Substance: PREDNISONE
  2. ENBREL [Suspect]
     Active Substance: ETANERCEPT
     Indication: RHEUMATOID ARTHRITIS
     Dosage: 50 MG, ONCE A WEEK
     Route: 065

REACTIONS (13)
  - Fatigue [Recovering/Resolving]
  - Stent placement [Unknown]
  - Head injury [Unknown]
  - Gait disturbance [Unknown]
  - Coronary artery bypass [Unknown]
  - Pain [Recovering/Resolving]
  - Joint swelling [Recovering/Resolving]
  - Joint warmth [Recovering/Resolving]
  - Fall [Unknown]
  - Malaise [Not Recovered/Not Resolved]
  - Erythema [Recovering/Resolving]
  - Chest pain [Unknown]
  - Arthralgia [Recovering/Resolving]

NARRATIVE: CASE EVENT DATE: 2015
